FAERS Safety Report 7771683-3 (Version None)
Quarter: 2011Q3

REPORT INFORMATION
  Report Type: 
  Country: None (occurrence: None)
  Receive Date: 20110922
  Receipt Date: 20101012
  Transmission Date: 20111222
  Serious: Yes (Life-Threatening)
  Sender: FDA-Public Use
  Company Number: US-ASTRAZENECA-2010SE48263

PATIENT
  Age: 25108 Day
  Sex: Female
  Weight: 61.2 kg

DRUGS (4)
  1. PAXIL [Concomitant]
     Indication: DEPRESSION
     Route: 048
     Dates: start: 20081012
  2. SEROQUEL XR [Suspect]
     Indication: BIPOLAR DISORDER
     Route: 048
     Dates: start: 20060401, end: 20101012
  3. WELLBUTRIN SR [Concomitant]
     Indication: DEPRESSION
     Route: 048
     Dates: start: 20081012
  4. HYDROCHLOROTHIAZIDE [Concomitant]
     Indication: HYPERTENSION
     Route: 048
     Dates: start: 20100101

REACTIONS (1)
  - SUICIDAL IDEATION [None]
